FAERS Safety Report 10973918 (Version 1)
Quarter: 2015Q1

REPORT INFORMATION
  Report Type: Spontaneous
  Country: US (occurrence: None)
  Receive Date: 20150226
  Receipt Date: 20150226
  Transmission Date: 20150721
  Serious: No
  Sender: FDA-Public Use
  Company Number: TAP2009Q00419

PATIENT
  Age: 74 Year
  Sex: Female
  Weight: 83.92 kg

DRUGS (8)
  1. COLCHICINE. [Concomitant]
     Active Substance: COLCHICINE
  2. PROCARDIA [Concomitant]
     Active Substance: NIFEDIPINE
  3. COUMADIN (WARFAIN SODIUM) [Concomitant]
  4. ULORIC [Suspect]
     Active Substance: FEBUXOSTAT
     Indication: GOUT
     Route: 048
     Dates: start: 20090320, end: 20090321
  5. INDOCINE (INDOMETACIN) [Concomitant]
  6. LASIX [Concomitant]
     Active Substance: FUROSEMIDE
  7. STATOLOL (ALL OTHER THERAPEUTIC PRODUCTS) [Concomitant]
  8. COREG [Concomitant]
     Active Substance: CARVEDILOL

REACTIONS (2)
  - Rash [None]
  - Pruritus [None]
